FAERS Safety Report 15178141 (Version 1)
Quarter: 2018Q3

REPORT INFORMATION
  Report Type: Spontaneous
  Country: AT (occurrence: AT)
  Receive Date: 20180721
  Receipt Date: 20180721
  Transmission Date: 20181010
  Serious: Yes (Other)
  Sender: FDA-Public Use
  Company Number: AT-ACCORD-069630

PATIENT
  Age: 32 Year
  Sex: Male
  Weight: 80 kg

DRUGS (9)
  1. IVADAL [Concomitant]
     Active Substance: ZOLPIDEM TARTRATE
     Dosage: 1 DF, 1X/DAY, 0/0/0/1
  2. DEPAKINE RETARD [Concomitant]
     Active Substance: VALPROIC ACID
     Dosage: 300 MG, 1X/DAY, 0/0/1
  3. CYMBALTA [Concomitant]
     Active Substance: DULOXETINE HYDROCHLORIDE
     Dosage: 90 MG, 1X/DAY, 1/0/0
  4. PANTOLOC [Concomitant]
     Active Substance: PANTOPRAZOLE SODIUM
     Dosage: 20 MG, 1X/DAY
  5. LAMICTAL [Concomitant]
     Active Substance: LAMOTRIGINE
     Dosage: 200 MG, 2X/DA, 1/0/1
  6. PROTHIPENDYL [Concomitant]
     Active Substance: PROTHIPENDYL
     Dosage: 120 MG, 1X/DAY, 0/0/1.5
  7. CELEBREX [Concomitant]
     Active Substance: CELECOXIB
     Dosage: 200 UNK, 1X/DAY, AS NEEDED
  8. LYRICA [Concomitant]
     Active Substance: PREGABALIN
     Dosage: 300 MG, 2X/DAY, 1/0/1
  9. METHOTREXATE. [Suspect]
     Active Substance: METHOTREXATE
     Indication: SPONDYLOARTHROPATHY
     Dates: start: 201612, end: 201705

REACTIONS (2)
  - Hepatic enzyme increased [Unknown]
  - Epilepsy [Unknown]
